FAERS Safety Report 10394474 (Version 3)
Quarter: 2014Q3

REPORT INFORMATION
  Report Type: Spontaneous
  Country: VE (occurrence: VE)
  Receive Date: 20140819
  Receipt Date: 20140903
  Transmission Date: 20150326
  Serious: Yes (Other)
  Sender: FDA-Public Use
  Company Number: PHHY2014VE103048

PATIENT
  Age: 55 Year
  Sex: Female

DRUGS (4)
  1. TEGRETOL-XR [Suspect]
     Active Substance: CARBAMAZEPINE
     Indication: EPILEPSY
     Dosage: 400 MG, BID
  2. TEGRETOL-XR [Suspect]
     Active Substance: CARBAMAZEPINE
     Dosage: 400 MG, (ONLY AT NIGHT)
     Dates: end: 20140822
  3. PHENOBARBITAL. [Concomitant]
     Active Substance: PHENOBARBITAL
     Indication: EPILEPSY
     Dosage: 100 MG, BID (2 DAILY)
  4. RIVOTRIL [Concomitant]
     Active Substance: CLONAZEPAM
     Indication: EPILEPSY
     Dosage: 2 MG, BID (2 DAILY)

REACTIONS (7)
  - Convulsion [Recovered/Resolved]
  - Coma [Unknown]
  - Syncope [Unknown]
  - General physical condition abnormal [Unknown]
  - Asthenia [Unknown]
  - Incorrect dose administered [Unknown]
  - Shock [Unknown]

NARRATIVE: CASE EVENT DATE: 20140805
